FAERS Safety Report 23422252 (Version 1)
Quarter: 2024Q1

REPORT INFORMATION
  Report Type: Spontaneous
  Country: US (occurrence: None)
  Receive Date: 20240118
  Receipt Date: 20240118
  Transmission Date: 20240410
  Serious: Yes (Other)
  Sender: FDA-Public Use
  Company Number: None

PATIENT
  Age: 16 Year
  Sex: Male
  Weight: 62.1 kg

DRUGS (2)
  1. SEYSARA [Suspect]
     Active Substance: SARECYCLINE HYDROCHLORIDE
     Indication: Acne
     Dates: start: 20230201, end: 20230401
  2. Lil Critters vitamins [Concomitant]

REACTIONS (5)
  - Visual impairment [None]
  - Visual impairment [None]
  - Vision blurred [None]
  - Refraction disorder [None]
  - Drug ineffective [None]

NARRATIVE: CASE EVENT DATE: 20230401
